FAERS Safety Report 6135292-4 (Version None)
Quarter: 2009Q1

REPORT INFORMATION
  Report Type: 
  Country: None (occurrence: None)
  Receive Date: 20090327
  Receipt Date: 20090317
  Transmission Date: 20090719
  Serious: Yes (Disabling)
  Sender: FDA-Public Use
  Company Number: JP-ELI_LILLY_AND_COMPANY-JP200903002163

PATIENT
  Sex: Male
  Weight: 24 kg

DRUGS (1)
  1. HUMATROPE [Suspect]
     Indication: GROWTH HORMONE DEFICIENCY
     Dosage: 0.5 MG, DAILY (1/D)
     Route: 058
     Dates: start: 20030722, end: 20071113

REACTIONS (6)
  - BRAIN NEOPLASM [None]
  - CHEST PAIN [None]
  - MOTION SICKNESS [None]
  - PALLOR [None]
  - PALPITATIONS [None]
  - SUPRAVENTRICULAR TACHYCARDIA [None]
